FAERS Safety Report 9011802 (Version 1)
Quarter: 2013Q1

REPORT INFORMATION
  Report Type: Spontaneous
  Country: US (occurrence: US)
  Receive Date: 20130113
  Receipt Date: 20130113
  Transmission Date: 20140127
  Serious: Yes (Other)
  Sender: FDA-Public Use
  Company Number: US-009507513-1301USA004123

PATIENT
  Age: 3 Year
  Sex: Female

DRUGS (5)
  1. SINGULAIR [Suspect]
     Indication: RESPIRATORY TRACT INFECTION
  2. DECADRON [Suspect]
     Indication: URTICARIA
     Dosage: 1 MG, UNSPECIFIED INJECTION
     Route: 050
  3. XYZAL [Suspect]
     Indication: PRODUCT USED FOR UNKNOWN INDICATION
  4. ZYRTEC [Suspect]
     Dosage: 5 ML, 1 TSP ONCE
  5. ZITHROMAX [Suspect]

REACTIONS (5)
  - Urticaria [Unknown]
  - Rash [Unknown]
  - Eye swelling [Unknown]
  - Anaphylactic shock [Unknown]
  - Wrong drug administered [Unknown]
